FAERS Safety Report 6896823-X (Version None)
Quarter: 2010Q3

REPORT INFORMATION
  Report Type: 
  Country: None (occurrence: None)
  Receive Date: 20100802
  Receipt Date: 20070223
  Transmission Date: 20110219
  Serious: No
  Sender: FDA-Public Use
  Company Number: US-PFIZER INC-2007014604

PATIENT
  Sex: Female
  Weight: 112.5 kg

DRUGS (7)
  1. LYRICA [Suspect]
     Indication: NEURITIS
     Dates: start: 20060101
  2. TEGRETOL [Concomitant]
  3. WELLBUTRIN [Concomitant]
  4. METHADONE HCL [Concomitant]
  5. DILAUDID [Concomitant]
  6. CLONIDINE [Concomitant]
  7. NAMENDA [Concomitant]

REACTIONS (1)
  - WEIGHT INCREASED [None]
